FAERS Safety Report 14480179 (Version 1)
Quarter: 2018Q1

REPORT INFORMATION
  Report Type: Spontaneous
  Country: BE (occurrence: BE)
  Receive Date: 20180202
  Receipt Date: 20180202
  Transmission Date: 20180509
  Serious: Yes (Other)
  Sender: FDA-Public Use
  Company Number: BE-JNJFOC-20180133295

PATIENT
  Age: 68 Year
  Sex: Male

DRUGS (13)
  1. METHOTREXATE. [Suspect]
     Active Substance: METHOTREXATE
     Indication: B-CELL LYMPHOMA
     Route: 065
     Dates: start: 2014, end: 2016
  2. MABTHERA [Suspect]
     Active Substance: RITUXIMAB
     Indication: B-CELL LYMPHOMA
     Route: 065
     Dates: start: 2014, end: 2016
  3. CYCLOPHOSPHAMIDE. [Suspect]
     Active Substance: CYCLOPHOSPHAMIDE
     Indication: B-CELL LYMPHOMA
     Route: 065
     Dates: start: 2014, end: 2016
  4. BURINEX [Concomitant]
     Active Substance: BUMETANIDE
     Route: 065
  5. D-CURE [Concomitant]
     Active Substance: CHOLECALCIFEROL
     Route: 065
  6. DIMETHYL SULFOXIDE. [Concomitant]
     Active Substance: DIMETHYL SULFOXIDE
     Route: 065
     Dates: start: 201707
  7. ALDACTONE [Concomitant]
     Active Substance: SPIRONOLACTONE
     Route: 065
  8. COVERSYL [Concomitant]
     Active Substance: PERINDOPRIL
     Route: 065
  9. VINCRISTINE [Suspect]
     Active Substance: VINCRISTINE
     Indication: B-CELL LYMPHOMA
     Route: 065
     Dates: start: 2014, end: 2016
  10. PREDNISOLONE. [Suspect]
     Active Substance: PREDNISOLONE
     Indication: B-CELL LYMPHOMA
     Route: 065
     Dates: start: 2014, end: 2016
  11. ATORSTATINEG [Concomitant]
     Route: 065
  12. DOXORUBICIN HYDROCHLORIDE. [Suspect]
     Active Substance: DOXORUBICIN HYDROCHLORIDE
     Indication: B-CELL LYMPHOMA
     Route: 065
     Dates: start: 2014, end: 2016
  13. CLEXANE [Concomitant]
     Active Substance: ENOXAPARIN SODIUM
     Route: 065

REACTIONS (9)
  - Diabetes mellitus [Not Recovered/Not Resolved]
  - Sleep apnoea syndrome [Not Recovered/Not Resolved]
  - Product use in unapproved indication [Unknown]
  - Migraine [Not Recovered/Not Resolved]
  - Amyloidosis [Not Recovered/Not Resolved]
  - Aphthous ulcer [Not Recovered/Not Resolved]
  - Gastrooesophageal reflux disease [Not Recovered/Not Resolved]
  - Cataract [Not Recovered/Not Resolved]
  - Off label use [Unknown]

NARRATIVE: CASE EVENT DATE: 2014
